FAERS Safety Report 5353160-2 (Version None)
Quarter: 2007Q2

REPORT INFORMATION
  Report Type: 
  Country: None (occurrence: None)
  Receive Date: 20070607
  Receipt Date: 20070523
  Transmission Date: 20071010
  Serious: Yes (Death)
  Sender: FDA-Public Use
  Company Number: 100#08#2007-01955

PATIENT
  Age: 42 Year
  Sex: Male

DRUGS (11)
  1. CEFTAZIDIME [Suspect]
     Indication: PROPHYLACTIC CHEMOTHERAPY
  2. ACYCLOVIR [Suspect]
     Indication: PROPHYLACTIC CHEMOTHERAPY
  3. FLUCONAZOLE [Suspect]
     Indication: PROPHYLACTIC CHEMOTHERAPY
  4. AMIKACIN [Suspect]
     Indication: PROPHYLACTIC CHEMOTHERAPY
  5. CYCLOPHOSPHAMIDE [Concomitant]
  6. IDARUBICIN(IDARUBICIN) (IDARUBICIN) [Concomitant]
  7. VINCRISTINE(VINCRISTINE) (VINCRISTINE) [Concomitant]
  8. COLASPASE(ASPARAGINASE) (ASPARAGINASE) [Concomitant]
  9. DEXAMETHASONE [Concomitant]
  10. METHOTREXATE(METHOTREXATE) (METHOTREXATE) [Concomitant]
  11. ARACYTINE(CYTARABINE) (CYTARABINE) [Concomitant]

REACTIONS (8)
  - ARTERIAL RUPTURE [None]
  - BRONCHIAL HAEMORRHAGE [None]
  - BRONCHOPULMONARY ASPERGILLOSIS [None]
  - HAEMOPTYSIS [None]
  - LEUKOPENIA [None]
  - RESPIRATORY FAILURE [None]
  - TRACHEOBRONCHITIS [None]
  - VENOUS HAEMORRHAGE [None]
